FAERS Safety Report 23074583 (Version 1)
Quarter: 2023Q4

REPORT INFORMATION
  Report Type: Spontaneous
  Country: FR (occurrence: FR)
  Receive Date: 20231017
  Receipt Date: 20231017
  Transmission Date: 20240110
  Serious: Yes (Death, Other)
  Sender: FDA-Public Use
  Company Number: None

PATIENT
  Age: 70 Year
  Sex: Female

DRUGS (12)
  1. AKYNZEO (NETUPITANT\PALONOSETRON) [Suspect]
     Active Substance: NETUPITANT\PALONOSETRON
     Indication: Colon neoplasm
     Dosage: UNK, UNKNOWN
     Route: 048
     Dates: start: 2022, end: 202301
  2. OXALIPLATIN [Suspect]
     Active Substance: OXALIPLATIN
     Indication: Colon neoplasm
     Dosage: UNK, UNKNOWN
     Route: 042
     Dates: start: 2022, end: 20230119
  3. FLUOROURACIL [Suspect]
     Active Substance: FLUOROURACIL
     Indication: Colon neoplasm
     Dosage: UNK, UNKNOWN
     Route: 042
     Dates: start: 2022, end: 20230119
  4. AVASTIN [Suspect]
     Active Substance: BEVACIZUMAB
     Indication: Colon neoplasm
     Dosage: UNK, UNKNOWN
     Route: 042
     Dates: start: 2022, end: 20230119
  5. IRINOTECAN [Suspect]
     Active Substance: IRINOTECAN
     Indication: Colon neoplasm
     Dosage: UNK, UNKNOWN
     Route: 042
     Dates: start: 2022, end: 20230119
  6. ELIQUIS [Concomitant]
     Active Substance: APIXABAN
     Dosage: UNK, UNKNOWN
  7. IRBESARTAN [Concomitant]
     Active Substance: IRBESARTAN
     Dosage: UNK, UNKNOWN
  8. AMIODARONE [Concomitant]
     Active Substance: AMIODARONE
     Dosage: UNK, UNKNOWN
  9. BISOPROLOL FUMARATE [Concomitant]
     Active Substance: BISOPROLOL FUMARATE
     Dosage: UNK, UNKNOWN
  10. LEVOTHYROXINE [Concomitant]
     Active Substance: LEVOTHYROXINE
     Dosage: UNK, UNKNOWN
  11. FOLIC ACID [Concomitant]
     Active Substance: FOLIC ACID
     Dosage: UNK, UNKNOWN
  12. CHOLECALCIFEROL [Concomitant]
     Active Substance: CHOLECALCIFEROL
     Dosage: UNK, UNKNOWN

REACTIONS (6)
  - Thrombocytopenia [Fatal]
  - Cerebrovascular accident [Fatal]
  - General physical health deterioration [Fatal]
  - Speech disorder [Fatal]
  - Anaemia [Fatal]
  - Off label use [Unknown]

NARRATIVE: CASE EVENT DATE: 20220101
